FAERS Safety Report 7138632-2 (Version None)
Quarter: 2010Q4

REPORT INFORMATION
  Report Type: 
  Country: None (occurrence: None)
  Receive Date: 20101201
  Receipt Date: 20101201
  Transmission Date: 20110411
  Serious: Yes (Other)
  Sender: FDA-Public Use
  Company Number: None

PATIENT
  Sex: Female
  Weight: 118.5249 kg

DRUGS (1)
  1. LENALIDOMIDE [Suspect]
     Indication: LYMPHOMA
     Dosage: 25 MG DAILY PO
     Route: 048
     Dates: start: 20100713, end: 20101129

REACTIONS (1)
  - PREGNANCY [None]
